FAERS Safety Report 26049386 (Version 3)
Quarter: 2025Q4

REPORT INFORMATION
  Report Type: Spontaneous
  Country: JP (occurrence: JP)
  Receive Date: 20251115
  Receipt Date: 20251208
  Transmission Date: 20260118
  Serious: Yes (Life-Threatening, Hospitalization)
  Sender: AMGEN
  Company Number: JP-AMGEN-JPNSP2025222498

PATIENT
  Age: 27 Year
  Sex: Female

DRUGS (13)
  1. IMDELLTRA [Suspect]
     Active Substance: TARLATAMAB-DLLE
     Indication: Neuroendocrine tumour of the lung
     Dosage: 1 MILLIGRAM (DAY1,9, DRIP INFUSION)
     Route: 040
     Dates: start: 20250423, end: 2025
  2. IMDELLTRA [Suspect]
     Active Substance: TARLATAMAB-DLLE
     Indication: Pancreatic neuroendocrine tumour
     Dosage: 10 MILLIGRAM, Q2WK (DAY16, AT 2-WEEK INTERVALS AFTERWARD, DRIP INFUSION)
     Route: 040
     Dates: start: 20250501
  3. IMDELLTRA [Suspect]
     Active Substance: TARLATAMAB-DLLE
     Indication: Small cell lung cancer
  4. CISPLATIN [Concomitant]
     Active Substance: CISPLATIN
     Indication: Neuroendocrine tumour of the lung
  5. CISPLATIN [Concomitant]
     Active Substance: CISPLATIN
     Indication: Pancreatic neuroendocrine tumour
  6. DURVALUMAB [Concomitant]
     Active Substance: DURVALUMAB
     Indication: Neuroendocrine tumour of the lung
  7. DURVALUMAB [Concomitant]
     Active Substance: DURVALUMAB
     Indication: Pancreatic neuroendocrine tumour
  8. IRINOTECAN HYDROCHLORIDE [Concomitant]
     Active Substance: IRINOTECAN HYDROCHLORIDE
     Indication: Neuroendocrine tumour of the lung
  9. IRINOTECAN HYDROCHLORIDE [Concomitant]
     Active Substance: IRINOTECAN HYDROCHLORIDE
     Indication: Pancreatic neuroendocrine tumour
  10. LEVETIRACETAM [Concomitant]
     Active Substance: LEVETIRACETAM
     Indication: Tumour inflammation-associated neurotoxicity
     Dosage: 2000 MILLIGRAM, QD
     Route: 065
  11. LEVETIRACETAM [Concomitant]
     Active Substance: LEVETIRACETAM
     Dosage: UNK (INCREASED DOSE)
     Route: 065
  12. DEXAMETHASONE [Concomitant]
     Active Substance: DEXAMETHASONE
     Indication: Tumour inflammation-associated neurotoxicity
     Dosage: 2 MILLIGRAM, QD
  13. DEXAMETHASONE [Concomitant]
     Active Substance: DEXAMETHASONE
     Dosage: 6.6 MILLIGRAM
     Route: 065

REACTIONS (1)
  - Tumour inflammation-associated neurotoxicity [Recovered/Resolved]

NARRATIVE: CASE EVENT DATE: 20250424
